FAERS Safety Report 4686929-8 (Version None)
Quarter: 2005Q2

REPORT INFORMATION
  Report Type: 
  Country: None (occurrence: None)
  Receive Date: 20050606
  Receipt Date: 20050525
  Transmission Date: 20051028
  Serious: Yes (Life-Threatening)
  Sender: FDA-Public Use
  Company Number: FR_050306030

PATIENT
  Age: 59 Year
  Sex: Male
  Weight: 60 kg

DRUGS (10)
  1. GEMZAR [Suspect]
     Indication: LYMPHOMA
     Dosage: 1786 MG OTHER
     Route: 050
     Dates: start: 20050128
  2. ADRIBLASTINE (DOXORUBICIN HYDROCHLORIDE) [Concomitant]
  3. SOLU-MEDROL [Concomitant]
  4. CISPLATIN [Concomitant]
  5. ETOPHOS (ETOPOSIDE PHOSPHATE) [Concomitant]
  6. VINCRISTINE [Concomitant]
  7. ZOPHREN (ONDANESETRON HYDROCHLORIDE) [Concomitant]
  8. PLAVIX [Concomitant]
  9. ZOCOR (SIMVASTATIN RATIOPHARM) [Concomitant]
  10. COMBIVENT [Concomitant]

REACTIONS (14)
  - ABNORMAL BEHAVIOUR [None]
  - AGNOSIA [None]
  - APHASIA [None]
  - BRAIN SCAN ABNORMAL [None]
  - CARDIAC ARREST [None]
  - COMA [None]
  - CONFUSIONAL STATE [None]
  - DEPRESSED LEVEL OF CONSCIOUSNESS [None]
  - DYSPHAGIA [None]
  - FALL [None]
  - FEBRILE BONE MARROW APLASIA [None]
  - RESPIRATORY DISTRESS [None]
  - SPEECH DISORDER [None]
  - VITAMIN B1 DEFICIENCY [None]
